FAERS Safety Report 4357480-X (Version None)
Quarter: 2004Q2

REPORT INFORMATION
  Report Type: 
  Country: None (occurrence: None)
  Receive Date: 20040510
  Receipt Date: 20040428
  Transmission Date: 20050107
  Serious: Yes (Other)
  Sender: FDA-Public Use
  Company Number: S04-FRA-02008-01

PATIENT
  Sex: Male

DRUGS (3)
  1. EBIXA (MEMANTINE) [Suspect]
  2. INSULIN [Concomitant]
  3. GLUCOPHAGE [Concomitant]

REACTIONS (6)
  - ANTIDIURETIC HORMONE ABNORMALITY [None]
  - DRUG INEFFECTIVE [None]
  - GENERALISED OEDEMA [None]
  - NEOPLASM [None]
  - PERICARDITIS CONSTRICTIVE [None]
  - WEIGHT INCREASED [None]
